FAERS Safety Report 6475154-6 (Version None)
Quarter: 2009Q4

REPORT INFORMATION
  Report Type: 
  Country: None (occurrence: None)
  Receive Date: 20091204
  Receipt Date: 20090706
  Transmission Date: 20100525
  Serious: Yes (Hospitalization)
  Sender: FDA-Public Use
  Company Number: US-ELI_LILLY_AND_COMPANY-US200903000384

PATIENT
  Sex: Male
  Weight: 85.261 kg

DRUGS (4)
  1. B4Z-MC-LYDO PH III ADULT RELAPSE PREVENT [Suspect]
     Indication: ATTENTION DEFICIT/HYPERACTIVITY DISORDER
     Dosage: 80 MG, DAILY (1/D)
     Route: 048
     Dates: start: 20081202, end: 20081228
  2. B4Z-MC-LYDO PH III ADULT RELAPSE PREVENT [Suspect]
     Dosage: 100 MG, DAILY (1/D)
     Route: 048
     Dates: start: 20081229, end: 20090216
  3. B4Z-MC-LYDO PH III ADULT RELAPSE PREVENT [Suspect]
     Dosage: UNK, DAILY (1/D)
     Route: 048
     Dates: start: 20090217, end: 20090317
  4. TESTIM [Concomitant]
     Indication: HORMONE REPLACEMENT THERAPY
     Dates: start: 20090301

REACTIONS (1)
  - APPENDICITIS [None]
